FAERS Safety Report 9342467 (Version 1)
Quarter: 2013Q1

REPORT INFORMATION
  Report Type: Spontaneous
  Country: US (occurrence: None)
  Receive Date: 20121106
  Receipt Date: 20121106
  Transmission Date: 20140127
  Serious: Yes (Other)
  Sender: FDA-Public Use
  Company Number: 2012-1156

PATIENT
  Age: 12 Year
  Sex: Male
  Weight: 41 kg

DRUGS (6)
  1. INCRELEX (INCRELEX 10MG/ML) (MECASERMIN) (MECASERMIN) [Suspect]
     Indication: INSULIN-LIKE GROWTH FACTOR
     Dosage: 66 UNITS (66 UNITS, 1 IN 1D), SUBCUTANEOUS
     Route: 058
     Dates: start: 20120111, end: 20120301
  2. DEFLAZACORT (DEFLAZACORT) [Concomitant]
  3. LISINOPRIL (LISINOPRIL) [Concomitant]
  4. SINGULAIR [Concomitant]
  5. PREVACID (LANSOPRAZOLE) [Concomitant]
  6. CALCIUM D (CALCIUM D) [Concomitant]

REACTIONS (6)
  - Intracranial pressure increased [None]
  - Candida infection [None]
  - Streptococcal infection [None]
  - Diplopia [None]
  - Uveitis [None]
  - Papilloedema [None]
